FAERS Safety Report 23223283 (Version 2)
Quarter: 2023Q4

REPORT INFORMATION
  Report Type: Spontaneous
  Country: JP (occurrence: JP)
  Receive Date: 20231123
  Receipt Date: 20231222
  Transmission Date: 20240110
  Serious: Yes (Hospitalization)
  Sender: FDA-Public Use
  Company Number: JP-BRISTOL-MYERS SQUIBB COMPANY-2023-167562

PATIENT
  Age: 7 Decade
  Sex: Male

DRUGS (5)
  1. REVLIMID [Suspect]
     Active Substance: LENALIDOMIDE
     Indication: Plasma cell myeloma
     Dosage: BLD (BORTEZOMIB, REVLIMID, DEXAMETHASONE) THERAPY, 4 COURSES
     Route: 048
  2. REVLIMID [Suspect]
     Active Substance: LENALIDOMIDE
     Dosage: LD (LENALIDOMIDE, DEXAMETHASONE) THERAPY
     Route: 048
  3. LENADEX [Suspect]
     Active Substance: DEXAMETHASONE ACETATE
     Indication: Plasma cell myeloma
     Dosage: LD (REVLIMID, DEXAMETHASONE) THERAPY
  4. LENADEX [Suspect]
     Active Substance: DEXAMETHASONE ACETATE
     Dosage: BLD (BORTEZOMIB, LENALIDOMIDE, DEXAMETHASONE) THERAPY, 4 COURSES
  5. BORTEZOMIB [Suspect]
     Active Substance: BORTEZOMIB
     Indication: Plasma cell myeloma
     Dosage: BLD (BORTEZOMIB, LENALIDOMIDE, DEXAMETHASONE) THERAPY, 4 COURSES

REACTIONS (2)
  - Malaise [Unknown]
  - Spinal pain [Unknown]

NARRATIVE: CASE EVENT DATE: 20231117
